FAERS Safety Report 9830762 (Version 3)
Quarter: 2014Q1

REPORT INFORMATION
  Report Type: Report from Study
  Country: CA (occurrence: CA)
  Receive Date: 20140120
  Receipt Date: 20140214
  Transmission Date: 20141002
  Serious: Yes (Other)
  Sender: FDA-Public Use
  Company Number: CA-ABBVIE-14P-028-1191613-00

PATIENT
  Sex: Male
  Weight: 70.37 kg

DRUGS (2)
  1. HUMIRA [Suspect]
     Indication: CROHN^S DISEASE
     Route: 058
     Dates: start: 20130123, end: 20131203
  2. HUMIRA [Suspect]
     Dosage: EVERY 7-10 DAYS
     Route: 058
     Dates: start: 20131218

REACTIONS (1)
  - Tonsillitis [Recovered/Resolved]
